FAERS Safety Report 4519055-9 (Version None)
Quarter: 2004Q4

REPORT INFORMATION
  Report Type: 
  Country: None (occurrence: None)
  Receive Date: 20041201
  Receipt Date: 20041115
  Transmission Date: 20050328
  Serious: Yes (Death)
  Sender: FDA-Public Use
  Company Number: 2004PL000072

PATIENT

DRUGS (7)
  1. AZATHIOPRINE [Suspect]
     Indication: PROPHYLAXIS AGAINST TRANSPLANT REJECTION
     Dosage: 2 MG/KG; DAILY; ORAL
     Route: 048
  2. THYMOGLOBULIN [Concomitant]
  3. CYCLOSPORINE [Concomitant]
  4. METHYLPREDNISOLONE [Concomitant]
  5. SULFAMETHOXAZOLE + TRIMETHOPRIM [Concomitant]
  6. ACYCLOVIR [Concomitant]
  7. NYSTATIN [Concomitant]

REACTIONS (6)
  - BRAIN ABSCESS [None]
  - KAPOSI'S SARCOMA [None]
  - LEUKOPENIA [None]
  - LYMPHOPENIA [None]
  - PNEUMONIA CYTOMEGALOVIRAL [None]
  - SEPSIS [None]
